FAERS Safety Report 24328060 (Version 2)
Quarter: 2024Q4

REPORT INFORMATION
  Report Type: Spontaneous
  Country: IT (occurrence: IT)
  Receive Date: 20240917
  Receipt Date: 20241007
  Transmission Date: 20250114
  Serious: Yes (Disabling)
  Sender: ROCHE
  Company Number: IT-ROCHE-10000076064

PATIENT
  Age: 64 Year
  Sex: Female

DRUGS (1)
  1. VABYSMO [Suspect]
     Active Substance: FARICIMAB-SVOA
     Indication: Diabetic retinal oedema
     Dosage: THE PATIENT WITH DIABETIC MACULAR OEDEMA WAS AT THE 3RD MONTHLY INJECTION OF THE 4 LOADING DOSES.
     Route: 065

REACTIONS (3)
  - Retinal ischaemia [Unknown]
  - Chorioretinitis [Unknown]
  - Iridocyclitis [Recovered/Resolved]

NARRATIVE: CASE EVENT DATE: 20240801
